FAERS Safety Report 21642788 (Version 1)
Quarter: 2022Q4

REPORT INFORMATION
  Report Type: Spontaneous
  Country: NG (occurrence: NG)
  Receive Date: 20221125
  Receipt Date: 20221125
  Transmission Date: 20230113
  Serious: No
  Sender: FDA-Public Use
  Company Number: NG-BoehringerIngelheim-2022-BI-203905

PATIENT
  Age: 38 Year
  Sex: Female

DRUGS (1)
  1. FLOMAX [Suspect]
     Active Substance: TAMSULOSIN HYDROCHLORIDE
     Indication: Ureterolithiasis
     Dosage: UNK
     Route: 065

REACTIONS (3)
  - Pain [Unknown]
  - Product use issue [Unknown]
  - Off label use [Unknown]
